FAERS Safety Report 11421912 (Version 2)
Quarter: 2015Q3

REPORT INFORMATION
  Report Type: Spontaneous
  Country: US (occurrence: US)
  Receive Date: 20150827
  Receipt Date: 20150911
  Transmission Date: 20151125
  Serious: No
  Sender: FDA-Public Use
  Company Number: US-009507513-1508USA006257

PATIENT
  Age: 53 Year
  Sex: Male

DRUGS (1)
  1. INVANZ [Suspect]
     Active Substance: ERTAPENEM SODIUM
     Indication: BACTERIAL INFECTION
     Dosage: 1 MG, UNK
     Route: 042
     Dates: start: 20150809, end: 201508

REACTIONS (10)
  - Sudden onset of sleep [Unknown]
  - Pallor [Unknown]
  - Injection site erythema [Unknown]
  - Diarrhoea haemorrhagic [Unknown]
  - Diarrhoea [Not Recovered/Not Resolved]
  - Product physical issue [Unknown]
  - Headache [Recovered/Resolved]
  - Injection site vesicles [Unknown]
  - Weight decreased [Unknown]
  - Drug administration error [Unknown]

NARRATIVE: CASE EVENT DATE: 201508
